FAERS Safety Report 13695686 (Version 2)
Quarter: 2017Q3

REPORT INFORMATION
  Report Type: Spontaneous
  Country: IT (occurrence: IT)
  Receive Date: 20170627
  Receipt Date: 20170723
  Transmission Date: 20171127
  Serious: Yes (Hospitalization, Other)
  Sender: FDA-Public Use
  Company Number: IT-MYLANLABS-2017M1037464

PATIENT

DRUGS (2)
  1. BETAMETHASONE. [Interacting]
     Active Substance: BETAMETHASONE
     Indication: PRODUCT USED FOR UNKNOWN INDICATION
     Dosage: 0.5 MG, QD
     Route: 048
  2. IBUPROFEN. [Suspect]
     Active Substance: IBUPROFEN
     Indication: PRODUCT USED FOR UNKNOWN INDICATION
     Dosage: 200 MG, QD
     Route: 048

REACTIONS (6)
  - Treatment noncompliance [Recovering/Resolving]
  - Self-medication [Recovering/Resolving]
  - Drug interaction [Recovering/Resolving]
  - Stomatitis haemorrhagic [Recovering/Resolving]
  - Melaena [Recovering/Resolving]
  - Labelled drug-drug interaction medication error [Recovering/Resolving]
